FAERS Safety Report 22134999 (Version 1)
Quarter: 2023Q1

REPORT INFORMATION
  Report Type: Report from Study
  Country: IT (occurrence: IT)
  Receive Date: 20230324
  Receipt Date: 20230324
  Transmission Date: 20230418
  Serious: Yes (Other)
  Sender: FDA-Public Use
  Company Number: None

PATIENT
  Age: 58 Year
  Sex: Female
  Weight: 67 kg

DRUGS (5)
  1. FLUOROURACIL [Suspect]
     Active Substance: FLUOROURACIL
     Indication: Pancreatic carcinoma
     Dosage: 4380 MG EVERY 14 DAYS
  2. OXALIPLATIN [Suspect]
     Active Substance: OXALIPLATIN
     Indication: Pancreatic carcinoma
     Dosage: 140 MG EVERY 14 DAYS
  3. PANTOPRAZOLE [Concomitant]
     Active Substance: PANTOPRAZOLE
     Dosage: 40 MG, 1/DAY
  4. PANCRELIPASE [Concomitant]
     Active Substance: PANCRELIPASE
     Dosage: 1000 IU 5 CP/DAY (1 CP AT BREAKFAST, 2 CP AT LUNCH, 2 CP AT DINNER)
  5. POTASSIUM CHLORIDE [Concomitant]
     Active Substance: POTASSIUM CHLORIDE
     Dosage: 600 MG, 4/DAY (2 CP AFTER LUNCH, 2 CP AFTER DINNER)

REACTIONS (5)
  - Neuropathy peripheral [Not Recovered/Not Resolved]
  - Muscle tightness [Unknown]
  - Diarrhoea [Not Recovered/Not Resolved]
  - Paraesthesia oral [Unknown]
  - Neutropenia [Recovered/Resolved]

NARRATIVE: CASE EVENT DATE: 20221201
